FAERS Safety Report 13159046 (Version 1)
Quarter: 2017Q1

REPORT INFORMATION
  Report Type: Spontaneous
  Country: US (occurrence: US)
  Receive Date: 20170127
  Receipt Date: 20170127
  Transmission Date: 20170428
  Serious: Yes (Other)
  Sender: FDA-Public Use
  Company Number: US-GLAXOSMITHKLINE-US2017GSK010439

PATIENT
  Age: 40 Year
  Sex: Female
  Weight: 67 kg

DRUGS (5)
  1. FLEXERIL [Concomitant]
     Active Substance: CYCLOBENZAPRINE HYDROCHLORIDE
     Indication: MUSCLE SPASMS
  2. EXCEDRIN MIGRAINE [Suspect]
     Active Substance: ACETAMINOPHEN\ASPIRIN\CAFFEINE
     Indication: MIGRAINE
     Dosage: UNK
     Route: 048
     Dates: end: 201609
  3. OSPHENA [Concomitant]
     Active Substance: OSPEMIFENE
     Indication: VULVOVAGINAL DRYNESS
  4. NORTRIPTYLINE [Concomitant]
     Active Substance: NORTRIPTYLINE
     Indication: MIGRAINE
  5. TREXIMET [Concomitant]
     Active Substance: NAPROXEN SODIUM\SUMATRIPTAN SUCCINATE
     Indication: MIGRAINE

REACTIONS (11)
  - Eye oedema [Not Recovered/Not Resolved]
  - Road traffic accident [Unknown]
  - Bone disorder [Unknown]
  - Drug effect decreased [Unknown]
  - Hypoaesthesia [Unknown]
  - Fibromyalgia [Not Recovered/Not Resolved]
  - Nephropathy [Unknown]
  - Pain [Recovering/Resolving]
  - Insomnia [Recovering/Resolving]
  - Extra dose administered [Unknown]
  - Hysterectomy [Unknown]

NARRATIVE: CASE EVENT DATE: 2008
